FAERS Safety Report 19109643 (Version 1)
Quarter: 2021Q2

REPORT INFORMATION
  Report Type: Spontaneous
  Country: US (occurrence: US)
  Receive Date: 20210409
  Receipt Date: 20210409
  Transmission Date: 20210717
  Serious: No
  Sender: FDA-Public Use
  Company Number: US-DRREDDYS-USA/USA/21/0133597

PATIENT
  Age: 65 Year
  Sex: Male
  Weight: 87.75 kg

DRUGS (1)
  1. HABITROL [Suspect]
     Active Substance: NICOTINE
     Indication: TOBACCO USER
     Dosage: ONE PATCH DAILY
     Route: 062
     Dates: start: 20210321, end: 20210323

REACTIONS (2)
  - Application site rash [Unknown]
  - Application site pruritus [Unknown]
